FAERS Safety Report 9226364 (Version 3)
Quarter: 2013Q2

REPORT INFORMATION
  Report Type: Spontaneous
  Country: TR (occurrence: TR)
  Receive Date: 20130411
  Receipt Date: 20130522
  Transmission Date: 20140414
  Serious: Yes (Life-Threatening)
  Sender: FDA-Public Use
  Company Number: TR-SANOFI-AVENTIS-2013SA036256

PATIENT
  Age: 62 Year
  Sex: Male
  Weight: 76 kg

DRUGS (7)
  1. CLEXANE [Suspect]
     Indication: PERCUTANEOUS CORONARY INTERVENTION
     Route: 051
     Dates: start: 20130328, end: 20130329
  2. CLEXANE [Suspect]
     Indication: PERCUTANEOUS CORONARY INTERVENTION
     Route: 051
     Dates: start: 20130328, end: 20130329
  3. BARE METAL STENT [Suspect]
     Indication: STENT PLACEMENT
  4. CLOPIDOGREL [Concomitant]
     Indication: PERCUTANEOUS CORONARY INTERVENTION
     Route: 048
     Dates: start: 20130328, end: 20130328
  5. CLOPIDOGREL [Concomitant]
     Indication: PERCUTANEOUS CORONARY INTERVENTION
     Route: 048
     Dates: start: 20130329
  6. ACETYLSALICYLIC ACID [Concomitant]
     Indication: PERCUTANEOUS CORONARY INTERVENTION
     Route: 048
     Dates: start: 20130328, end: 20130328
  7. ACETYLSALICYLIC ACID [Concomitant]
     Indication: PERCUTANEOUS CORONARY INTERVENTION
     Route: 048
     Dates: start: 20130329

REACTIONS (1)
  - Coronary artery thrombosis [Recovered/Resolved with Sequelae]
